FAERS Safety Report 8602688-8 (Version None)
Quarter: 2012Q3

REPORT INFORMATION
  Report Type: 
  Country: None (occurrence: None)
  Receive Date: 20120817
  Receipt Date: 20120806
  Transmission Date: 20120928
  Serious: No
  Sender: FDA-Public Use
  Company Number: US-ASTRAZENECA-2010SE53398

PATIENT
  Age: 61 Year
  Sex: Female

DRUGS (3)
  1. SYMBICORT [Suspect]
     Indication: ASTHMA
     Dosage: 160/4.5 MCG, UNKNOWN
     Route: 055
  2. TOPROL-XL [Suspect]
     Route: 048
  3. NEXIUM [Suspect]
     Route: 048

REACTIONS (6)
  - BLOOD PRESSURE INCREASED [None]
  - GASTRIC DISORDER [None]
  - BRONCHITIS [None]
  - MALAISE [None]
  - DRUG DOSE OMISSION [None]
  - DIARRHOEA [None]
